FAERS Safety Report 8803460 (Version 1)
Quarter: 2012Q4

REPORT INFORMATION
  Report Type: 
  Country: US (occurrence: US)
  Receive Date: 20120924
  Receipt Date: 20120924
  Transmission Date: 20130627
  Serious: No
  Sender: FDA-Public Use
  Company Number: US-ASTRAZENECA-2012SE61267

PATIENT
  Age: 49 Year
  Sex: Female
  Weight: 75.3 kg

DRUGS (3)
  1. NEXIUM [Suspect]
     Route: 048
  2. HYDROCHLOROTHAIZIDE [Concomitant]
  3. WESTCORT [Concomitant]

REACTIONS (7)
  - Neck pain [Unknown]
  - Upper respiratory tract infection [Unknown]
  - Hypertension [Unknown]
  - Gastritis [Unknown]
  - Varicose vein [Unknown]
  - Ligament sprain [Unknown]
  - Rash [Unknown]
